FAERS Safety Report 6752783-3 (Version None)
Quarter: 2010Q2

REPORT INFORMATION
  Report Type: 
  Country: None (occurrence: None)
  Receive Date: 20100602
  Receipt Date: 20100602
  Transmission Date: 20101027
  Serious: Yes (Other)
  Sender: FDA-Public Use
  Company Number: None

PATIENT
  Age: 56 Year
  Sex: Male
  Weight: 81.6475 kg

DRUGS (2)
  1. LEVAQUIN [Suspect]
     Indication: PNEUMONIA
     Dosage: 1 TABLET DAILY FOR 10 DAYS PO
     Route: 048
     Dates: start: 20091201, end: 20091201
  2. LEVAQUIN [Suspect]
     Indication: PNEUMONIA
     Dosage: 1 TABLET DAILY FOR 10 DAYS PO
     Route: 048
     Dates: start: 20100101, end: 20100201

REACTIONS (1)
  - TENDON DISORDER [None]
